FAERS Safety Report 20121904 (Version 1)
Quarter: 2021Q4

REPORT INFORMATION
  Report Type: Spontaneous
  Country: US (occurrence: US)
  Receive Date: 20211128
  Receipt Date: 20211128
  Transmission Date: 20220303
  Serious: Yes (Death, Other)
  Sender: FDA-Public Use
  Company Number: US-PURDUE-USA-2020-0232919

PATIENT
  Age: 51 Year
  Sex: Female

DRUGS (6)
  1. MORPHINE SULFATE [Suspect]
     Active Substance: MORPHINE SULFATE
     Indication: Product used for unknown indication
     Dosage: UNK
     Route: 048
  2. HYDROCODONE BITARTRATE AND ACETAMINOPHEN [Suspect]
     Active Substance: ACETAMINOPHEN\HYDROCODONE BITARTRATE
     Indication: Product used for unknown indication
     Dosage: UNK
     Route: 048
  3. HYDROCODONE BITARTRATE [Suspect]
     Active Substance: HYDROCODONE BITARTRATE
     Indication: Product used for unknown indication
     Dosage: UNK
     Route: 048
  4. MORPHINE SULFATE [Suspect]
     Active Substance: MORPHINE SULFATE
     Indication: Product used for unknown indication
     Dosage: UNK
     Route: 048
  5. FENTANYL [Suspect]
     Active Substance: FENTANYL
     Indication: Product used for unknown indication
     Dosage: UNK
     Route: 065
  6. COCAINE [Suspect]
     Active Substance: COCAINE
     Indication: Product used for unknown indication
     Dosage: UNK
     Route: 065

REACTIONS (21)
  - Toxicity to various agents [Fatal]
  - Drug dependence [Unknown]
  - Drug abuse [Unknown]
  - Overdose [Unknown]
  - Psychomotor skills impaired [Unknown]
  - Constipation [Unknown]
  - Hyperaesthesia [Unknown]
  - Respiratory rate decreased [Unknown]
  - Withdrawal syndrome [Unknown]
  - Myalgia [Unknown]
  - Bone pain [Unknown]
  - Sleep disorder [Unknown]
  - Diarrhoea [Unknown]
  - Vomiting [Unknown]
  - Cold sweat [Unknown]
  - Influenza like illness [Unknown]
  - Nasopharyngitis [Unknown]
  - Decreased appetite [Unknown]
  - Anxiety [Unknown]
  - Depression [Unknown]
  - Nausea [Unknown]

NARRATIVE: CASE EVENT DATE: 20050101
